FAERS Safety Report 11014519 (Version 2)
Quarter: 2015Q2

REPORT INFORMATION
  Report Type: Spontaneous
  Country: US (occurrence: US)
  Receive Date: 20150412
  Receipt Date: 20150525
  Transmission Date: 20150821
  Serious: Yes (Disabling, Other)
  Sender: FDA-Public Use
  Company Number: US-JNJFOC-20140316950

PATIENT
  Sex: Male
  Weight: 58.06 kg

DRUGS (2)
  1. OLYSIO [Suspect]
     Active Substance: SIMEPREVIR
     Indication: CHRONIC HEPATITIS C
     Route: 048
     Dates: start: 20140224, end: 20140430
  2. SOFOSBUVIR [Suspect]
     Active Substance: SOFOSBUVIR
     Indication: CHRONIC HEPATITIS C
     Dates: start: 20140224

REACTIONS (4)
  - Peripheral swelling [Unknown]
  - Erythema [Not Recovered/Not Resolved]
  - Photosensitivity reaction [Recovering/Resolving]
  - Off label use [Unknown]
